FAERS Safety Report 10434794 (Version 1)
Quarter: 2014Q3

REPORT INFORMATION
  Report Type: Spontaneous
  Country: US (occurrence: None)
  Receive Date: 20140815
  Receipt Date: 20140815
  Transmission Date: 20150326
  Serious: No
  Sender: FDA-Public Use
  Company Number: 2014TUS002532

PATIENT
  Sex: Female

DRUGS (3)
  1. BRINTELLIX [Suspect]
     Active Substance: VORTIOXETINE HYDROBROMIDE
     Indication: MAJOR DEPRESSION
     Route: 048
     Dates: start: 20140321
  2. AMOXICILLIN. [Suspect]
     Active Substance: AMOXICILLIN
     Indication: SINUSITIS
     Route: 048
     Dates: start: 20140331
  3. ZYPREXA [Concomitant]
     Active Substance: OLANZAPINE

REACTIONS (12)
  - Drug interaction [None]
  - Heart rate irregular [None]
  - Respiratory tract congestion [None]
  - Asthenia [None]
  - Dizziness [None]
  - Insomnia [None]
  - Oropharyngeal pain [None]
  - Cough [None]
  - Sinusitis [None]
  - Sneezing [None]
  - Palpitations [None]
  - Fatigue [None]

NARRATIVE: CASE EVENT DATE: 20140331
